FAERS Safety Report 18900594 (Version 1)
Quarter: 2021Q1

REPORT INFORMATION
  Report Type: Report from Study
  Country: US (occurrence: US)
  Receive Date: 20210217
  Receipt Date: 20210217
  Transmission Date: 20210420
  Serious: Yes (Other)
  Sender: FDA-Public Use
  Company Number: US-BIOVITRUM-2020US6812

PATIENT
  Age: 14 Year
  Sex: Male
  Weight: 50 kg

DRUGS (1)
  1. KINERET [Suspect]
     Active Substance: ANAKINRA
     Indication: CRYOPYRIN ASSOCIATED PERIODIC SYNDROME
     Dosage: 350 MG IN MORNING AND 250 MG IN EVENING
     Route: 058
     Dates: start: 20190414

REACTIONS (6)
  - Product storage error [Unknown]
  - Arthralgia [Unknown]
  - Off label use [Not Recovered/Not Resolved]
  - Arthropathy [Unknown]
  - Rectal abscess [Unknown]
  - Intentional product misuse [Unknown]

NARRATIVE: CASE EVENT DATE: 20190414
